FAERS Safety Report 6758194-9 (Version None)
Quarter: 2010Q2

REPORT INFORMATION
  Report Type: 
  Country: None (occurrence: None)
  Receive Date: 20100603
  Receipt Date: 20100520
  Transmission Date: 20101027
  Serious: Yes (Other)
  Sender: FDA-Public Use
  Company Number: 2010S1000382-001

PATIENT
  Age: 69 Year
  Sex: Female

DRUGS (4)
  1. LIVALO [Suspect]
     Indication: HYPERCHOLESTEROLAEMIA
     Dosage: 1MG PO
     Route: 048
     Dates: start: 20040402
  2. ATENOLOL [Concomitant]
  3. NIFEDIPINE [Concomitant]
  4. HERBAL DRUG [Concomitant]

REACTIONS (1)
  - AMYOTROPHIC LATERAL SCLEROSIS [None]
